FAERS Safety Report 14444317 (Version 2)
Quarter: 2018Q1

REPORT INFORMATION
  Report Type: Spontaneous
  Country: US (occurrence: US)
  Receive Date: 20180125
  Receipt Date: 20180328
  Transmission Date: 20180509
  Serious: Yes (Other)
  Sender: FDA-Public Use
  Company Number: US-ASTRAZENECA-2018SE09014

PATIENT
  Age: 31464 Day
  Sex: Female
  Weight: 48.5 kg

DRUGS (4)
  1. SYMBICORT [Suspect]
     Active Substance: BUDESONIDE\FORMOTEROL FUMARATE DIHYDRATE
     Dosage: 160/4.5 MCG, TWO TIMES A DAY
     Route: 055
     Dates: start: 20180114
  2. OXYGEN. [Concomitant]
     Active Substance: OXYGEN
     Dosage: 2 L/MIN CONTINUOUSLY
     Route: 055
     Dates: start: 201712
  3. SYMBICORT [Suspect]
     Active Substance: BUDESONIDE\FORMOTEROL FUMARATE DIHYDRATE
     Dosage: 160/4.5 MCG, TWO TIMES A DAY
     Route: 055
     Dates: start: 201712
  4. ATROVENT [Concomitant]
     Active Substance: IPRATROPIUM BROMIDE
     Indication: DYSPNOEA
     Dosage: 2 PUFFS FOUR TIMES A DAY AS NEEDED WITH A MAXIMUM OF 12 PUFFS PER 24 HOURS

REACTIONS (7)
  - Device failure [Unknown]
  - Deafness [Unknown]
  - Drug dose omission [Not Recovered/Not Resolved]
  - Frustration tolerance decreased [Unknown]
  - Speech disorder [Unknown]
  - Oxygen saturation decreased [Unknown]
  - Intentional device misuse [Unknown]

NARRATIVE: CASE EVENT DATE: 20180114
